FAERS Safety Report 6361981-2 (Version None)
Quarter: 2009Q3

REPORT INFORMATION
  Report Type: 
  Country: None (occurrence: None)
  Receive Date: 20090916
  Receipt Date: 20090916
  Transmission Date: 20100115
  Serious: Yes (Other)
  Sender: FDA-Public Use
  Company Number: None

PATIENT
  Age: 64 Year
  Sex: Female
  Weight: 49.8957 kg

DRUGS (1)
  1. PROAIR HFA [Suspect]
     Indication: CHRONIC OBSTRUCTIVE PULMONARY DISEASE
     Dosage: 2 PUFFS 4 TIMES DAILY INHAL
     Route: 055
     Dates: start: 20090907, end: 20090909

REACTIONS (4)
  - BURNING SENSATION [None]
  - COUGH [None]
  - PYREXIA [None]
  - UNEVALUABLE EVENT [None]
